FAERS Safety Report 16814487 (Version 1)
Quarter: 2019Q3

REPORT INFORMATION
  Report Type: Spontaneous
  Country: US (occurrence: US)
  Receive Date: 20190917
  Receipt Date: 20190917
  Transmission Date: 20191005
  Serious: No
  Sender: FDA-Public Use
  Company Number: US-ALLERGAN-1907141US

PATIENT
  Age: 61 Year
  Sex: Female

DRUGS (4)
  1. LINZESS [Suspect]
     Active Substance: LINACLOTIDE
     Indication: CONSTIPATION
     Dosage: 145 ?G, QAM (BEFORE BREAKFAST)
     Route: 048
     Dates: start: 20190210
  2. LINZESS [Suspect]
     Active Substance: LINACLOTIDE
     Dosage: 145 ?G, QAM (BEFORE BREAKFAST)
     Route: 048
     Dates: start: 2017
  3. FLEET GLYCERINE [Concomitant]
     Indication: CONSTIPATION
     Dosage: Q 3 DAYS
     Route: 054
     Dates: start: 201902
  4. ANTIHYPERSENSITIVES [Concomitant]
     Indication: HYPERTENSION
     Dosage: LOW DOSE
     Route: 048

REACTIONS (4)
  - Diarrhoea [Recovered/Resolved]
  - Product packaging quantity issue [Unknown]
  - Poor quality product administered [Unknown]
  - Drug ineffective [Unknown]

NARRATIVE: CASE EVENT DATE: 2017
